FAERS Safety Report 6504184-0 (Version None)
Quarter: 2009Q4

REPORT INFORMATION
  Report Type: 
  Country: None (occurrence: None)
  Receive Date: 20091215
  Receipt Date: 20091204
  Transmission Date: 20100525
  Serious: Yes (Life-Threatening, Hospitalization, Other)
  Sender: FDA-Public Use
  Company Number: 2009AP004933

PATIENT
  Age: 67 Year
  Sex: Female

DRUGS (3)
  1. RISPERIDONE [Suspect]
  2. RISPERDAL CONSTA [Suspect]
     Indication: SCHIZOPHRENIA, PARANOID TYPE
     Dosage: 62.5 MG; QOW IM, 25 MG; IM; QOW, 37.5 MG; IM; QOW, 50 MG; IM; QOW
     Route: 030
     Dates: start: 20030101
  3. CITALOPRAM HYDROBROMIDE [Concomitant]

REACTIONS (4)
  - DRUG INEFFECTIVE [None]
  - GASTROINTESTINAL CARCINOMA [None]
  - METASTASES TO LIVER [None]
  - OVERDOSE [None]
